FAERS Safety Report 8200560-9 (Version None)
Quarter: 2012Q1

REPORT INFORMATION
  Report Type: 
  Country: None (occurrence: None)
  Receive Date: 20120307
  Receipt Date: 20120307
  Transmission Date: 20120608
  Serious: Yes (Hospitalization)
  Sender: FDA-Public Use
  Company Number: 2012SP010569

PATIENT
  Age: 46 Year
  Sex: Female

DRUGS (4)
  1. STILNOX /00914901/ [Concomitant]
  2. LEVOTHYROXINE SODIUM [Concomitant]
  3. XANAX [Concomitant]
  4. MIRTAZAPINE [Suspect]
     Indication: DEPRESSION
     Dosage: 1 DF;QD 2 DF;QD
     Dates: start: 20110805

REACTIONS (1)
  - PERICARDITIS [None]
